FAERS Safety Report 13945622 (Version 4)
Quarter: 2019Q1

REPORT INFORMATION
  Report Type: Spontaneous
  Country: US (occurrence: US)
  Receive Date: 20170907
  Receipt Date: 20190219
  Transmission Date: 20190417
  Serious: Yes (Hospitalization, Other)
  Sender: FDA-Public Use
  Company Number: US-DSJP-DSU-2017-135122

PATIENT

DRUGS (2)
  1. BENICAR HCT [Suspect]
     Active Substance: HYDROCHLOROTHIAZIDE\OLMESARTAN MEDOXOMIL
     Indication: PRODUCT USED FOR UNKNOWN INDICATION
     Dosage: 40-25 MG, QD
     Route: 048
     Dates: start: 20050531, end: 20170723
  2. BENICAR [Suspect]
     Active Substance: OLMESARTAN MEDOXOMIL
     Indication: HYPERTENSION
     Dosage: 20 MG, QD
     Route: 048
     Dates: start: 20050531, end: 20170723

REACTIONS (9)
  - Inflammatory bowel disease [Recovering/Resolving]
  - Chronic kidney disease [Not Recovered/Not Resolved]
  - Colon neoplasm [Unknown]
  - Peptic ulcer [Not Recovered/Not Resolved]
  - Diverticulitis [Recovering/Resolving]
  - Hiatus hernia [Unknown]
  - Gastritis erosive [Not Recovered/Not Resolved]
  - Gastroenteritis [Recovering/Resolving]
  - Gastrooesophageal reflux disease [Not Recovered/Not Resolved]

NARRATIVE: CASE EVENT DATE: 20050531
